FAERS Safety Report 15608600 (Version 2)
Quarter: 2018Q4

REPORT INFORMATION
  Report Type: Report from Study
  Country: US (occurrence: US)
  Receive Date: 20181112
  Receipt Date: 20181127
  Transmission Date: 20190205
  Serious: Yes (Death, Hospitalization, Other)
  Sender: FDA-Public Use
  Company Number: US-BAYER-2018-198406

PATIENT
  Age: 87 Year
  Sex: Male

DRUGS (3)
  1. WARFARIN [Concomitant]
     Active Substance: WARFARIN
  2. STIVARGA [Suspect]
     Active Substance: REGORAFENIB
     Indication: RECTAL CANCER
  3. STIVARGA [Suspect]
     Active Substance: REGORAFENIB
     Indication: COLORECTAL CANCER
     Dosage: 160 MG DAILY, 21 DAYS ON 7 DAYS OFF
     Route: 048
     Dates: start: 20181021

REACTIONS (20)
  - Abdominal pain upper [None]
  - Paraesthesia oral [None]
  - Yellow skin [None]
  - Death [Fatal]
  - Cerebral haemorrhage [None]
  - Balance disorder [None]
  - Epistaxis [Not Recovered/Not Resolved]
  - Asthenia [None]
  - Asthenia [None]
  - Food refusal [None]
  - Confusional state [None]
  - Confusional state [None]
  - Dysphonia [None]
  - Diarrhoea [None]
  - Mobility decreased [None]
  - Exercise tolerance decreased [None]
  - Fluid intake reduced [None]
  - Feeling abnormal [None]
  - Gait inability [None]
  - Fatigue [Not Recovered/Not Resolved]

NARRATIVE: CASE EVENT DATE: 2018
